FAERS Safety Report 9131682 (Version 1)
Quarter: 2013Q1

REPORT INFORMATION
  Report Type: Report from Study
  Country: US (occurrence: US)
  Receive Date: 20130301
  Receipt Date: 20130301
  Transmission Date: 20140127
  Serious: No
  Sender: FDA-Public Use
  Company Number: US-MYLANLABS-2012S1010809

PATIENT
  Age: 20 Year
  Sex: Female
  Weight: 60 kg

DRUGS (3)
  1. CLARAVIS [Suspect]
     Indication: ACNE CYSTIC
     Dates: start: 20120221
  2. AMNESTEEM CAPSULES [Suspect]
     Indication: ACNE CYSTIC
     Dates: end: 20120413
  3. AMNESTEEM CAPSULES [Suspect]
     Indication: ACNE CYSTIC
     Dates: end: 20120413

REACTIONS (1)
  - Depressed mood [Recovered/Resolved]
